FAERS Safety Report 5675456-7 (Version None)
Quarter: 2008Q2

REPORT INFORMATION
  Report Type: 
  Country: None (occurrence: None)
  Receive Date: 20080311
  Receipt Date: 20071216
  Transmission Date: 20081010
  Serious: No
  Sender: FDA-Public Use
  Company Number: 002#2#2007-00305

PATIENT
  Age: 55 Year
  Sex: Male
  Weight: 88.4514 kg

DRUGS (6)
  1. NEUPRO [Suspect]
     Indication: PARKINSON'S DISEASE
     Dosage: 6MG/24H,1 IN 1 D,TRANSDERMAL; 4MG/24H,1 IN 1 D,TRANSDERMAL
     Route: 062
     Dates: start: 20071001, end: 20071001
  2. NEUPRO [Suspect]
     Indication: PARKINSON'S DISEASE
     Dosage: 6MG/24H,1 IN 1 D,TRANSDERMAL; 4MG/24H,1 IN 1 D,TRANSDERMAL
     Route: 062
     Dates: start: 20071001
  3. COGENTIN [Concomitant]
  4. SINEMET [Concomitant]
  5. CRESTOR [Concomitant]
  6. UNSPECIFIED BP MEDICATION [Concomitant]

REACTIONS (3)
  - DRUG INEFFECTIVE [None]
  - TREMOR [None]
  - WRONG TECHNIQUE IN DRUG USAGE PROCESS [None]
